FAERS Safety Report 4718516-7 (Version None)
Quarter: 2005Q3

REPORT INFORMATION
  Report Type: 
  Country: None (occurrence: None)
  Receive Date: 20050719
  Receipt Date: 20050428
  Transmission Date: 20060218
  Serious: Yes (Hospitalization, Other)
  Sender: FDA-Public Use
  Company Number: 2005067304

PATIENT
  Age: 80 Year
  Sex: Female
  Weight: 88.905 kg

DRUGS (15)
  1. CELEBREX [Suspect]
     Indication: ILL-DEFINED DISORDER
     Dosage: UNKNOWN (100 MG, UNKNOWN), ORAL
     Route: 048
     Dates: start: 20020101
  2. BEXTRA [Suspect]
     Indication: ILL-DEFINED DISORDER
     Dosage: UNKNOWN (20 MG, UNKNOWN), ORAL
     Route: 048
     Dates: start: 20030101
  3. ASPIRIN [Suspect]
     Indication: MYOCARDIAL INFARCTION
     Dosage: UNKNOWN (350 MG, UNKNOWN), ORAL
     Route: 048
     Dates: start: 20040101, end: 20040601
  4. ISOSORBIDE (ISOSORBIDE) [Concomitant]
  5. GLIPIZIDE (GLIPIZINE) [Concomitant]
  6. LISINOPRIL [Concomitant]
  7. CLOPIDOGREL BISULFATE [Concomitant]
  8. PANTOPRAZOLE SODIUM [Concomitant]
  9. TRIAMTERENE (TRIAMTERENE) [Concomitant]
  10. EYEVITE (MINERAL NOS, VITAMINS NOS) [Concomitant]
  11. METFORMIN HCL [Concomitant]
  12. SIMVASTATIN [Concomitant]
  13. GLYCERYL TRINITRATE (GLYCERYL TRINITRATE) [Concomitant]
  14. GABAPENTIN [Concomitant]
  15. ALBUTEROL SULFATE HFA [Concomitant]

REACTIONS (8)
  - CONFUSIONAL STATE [None]
  - DEPRESSION [None]
  - HEADACHE [None]
  - INTRA-ABDOMINAL HAEMORRHAGE [None]
  - MYOCARDIAL INFARCTION [None]
  - NAUSEA [None]
  - PAIN [None]
  - VASCULAR OCCLUSION [None]
